FAERS Safety Report 21290129 (Version 1)
Quarter: 2022Q3

REPORT INFORMATION
  Report Type: Spontaneous
  Country: US (occurrence: None)
  Receive Date: 20220902
  Receipt Date: 20220902
  Transmission Date: 20221027
  Serious: Yes (Other)
  Sender: FDA-Public Use
  Company Number: None

PATIENT
  Age: 21 Year
  Sex: Female
  Weight: 54.45 kg

DRUGS (1)
  1. CIMZIA [Suspect]
     Active Substance: CERTOLIZUMAB PEGOL
     Indication: Rheumatoid arthritis
     Dates: start: 20220806, end: 20220829

REACTIONS (4)
  - Hypersensitivity [None]
  - Middle insomnia [None]
  - Urticaria [None]
  - Skin burning sensation [None]

NARRATIVE: CASE EVENT DATE: 20220824
